FAERS Safety Report 17222147 (Version 3)
Quarter: 2021Q2

REPORT INFORMATION
  Report Type: Spontaneous
  Country: US (occurrence: US)
  Receive Date: 20200101
  Receipt Date: 20210514
  Transmission Date: 20210716
  Serious: Yes (Other)
  Sender: FDA-Public Use
  Company Number: US-ASTRAZENECA-2019SF89659

PATIENT
  Age: 30210 Day
  Sex: Male
  Weight: 83.9 kg

DRUGS (32)
  1. ASPIRIN. [Concomitant]
     Active Substance: ASPIRIN
     Indication: CARDIAC DISORDER
  2. GLUCOSAMINE [Concomitant]
     Active Substance: GLUCOSAMINE
  3. TAMSULOSIN [Concomitant]
     Active Substance: TAMSULOSIN
  4. RANOLAZINE. [Concomitant]
     Active Substance: RANOLAZINE
  5. PROTONIX [Suspect]
     Active Substance: PANTOPRAZOLE SODIUM
     Indication: GASTROOESOPHAGEAL REFLUX DISEASE
     Route: 065
     Dates: start: 20180423
  6. ZANTAC [Concomitant]
     Active Substance: RANITIDINE HYDROCHLORIDE
  7. PROTONIX [Suspect]
     Active Substance: PANTOPRAZOLE SODIUM
     Indication: GASTROOESOPHAGEAL REFLUX DISEASE
     Dosage: GENERIC
     Route: 065
     Dates: start: 2011, end: 2019
  8. LEVOTHYROXINE. [Concomitant]
     Active Substance: LEVOTHYROXINE
  9. LEVOTHYROXINE. [Concomitant]
     Active Substance: LEVOTHYROXINE
  10. ALCAFTADINE/KETOROLAC [Concomitant]
  11. PRILOSEC [Suspect]
     Active Substance: OMEPRAZOLE MAGNESIUM
     Indication: GASTROOESOPHAGEAL REFLUX DISEASE
     Dosage: 20 OR 40 MG
     Route: 048
     Dates: start: 2000, end: 2019
  12. VITAMIN [Concomitant]
     Active Substance: VITAMINS
     Indication: VITAMIN SUPPLEMENTATION
  13. ALKA?SELTZER [Concomitant]
     Active Substance: ANHYDROUS CITRIC ACID\ASPIRIN\SODIUM BICARBONATE
  14. METOPROLOL TARTRATE. [Concomitant]
     Active Substance: METOPROLOL TARTRATE
  15. RAMIPRIL. [Concomitant]
     Active Substance: RAMIPRIL
  16. SUCRALFATE. [Concomitant]
     Active Substance: SUCRALFATE
  17. LEVAQUIN [Concomitant]
     Active Substance: LEVOFLOXACIN
  18. GAVISCON [Concomitant]
     Active Substance: ALUMINUM HYDROXIDE\MAGNESIUM CARBONATE
  19. PROVENTIL [Concomitant]
     Active Substance: ALBUTEROL
  20. GLUCOSAMINE [Concomitant]
     Active Substance: GLUCOSAMINE
  21. NEXIUM [Suspect]
     Active Substance: ESOMEPRAZOLE MAGNESIUM
     Indication: GASTROOESOPHAGEAL REFLUX DISEASE
     Route: 048
     Dates: start: 199503, end: 200003
  22. ATORVASTATIN [Concomitant]
     Active Substance: ATORVASTATIN
  23. SENNA [Concomitant]
     Active Substance: SENNA LEAF\SENNOSIDES\SENNOSIDES A AND B
  24. CARTIA [Concomitant]
  25. NEXIUM [Suspect]
     Active Substance: ESOMEPRAZOLE MAGNESIUM
     Indication: GASTROOESOPHAGEAL REFLUX DISEASE
     Dosage: 20 OR 40 MG
     Route: 048
     Dates: start: 2000, end: 2019
  26. RANEXA [Concomitant]
     Active Substance: RANOLAZINE
  27. TAMSULOSIN [Concomitant]
     Active Substance: TAMSULOSIN
  28. ALENDRONATE [Concomitant]
     Active Substance: ALENDRONATE SODIUM
  29. PRILOSEC [Suspect]
     Active Substance: OMEPRAZOLE MAGNESIUM
     Indication: GASTROOESOPHAGEAL REFLUX DISEASE
     Route: 048
     Dates: start: 199503, end: 200003
  30. METOPROLOL. [Concomitant]
     Active Substance: METOPROLOL
  31. RAMIPRIL. [Concomitant]
     Active Substance: RAMIPRIL
  32. BREO ELLIPTA [Concomitant]
     Active Substance: FLUTICASONE FUROATE\VILANTEROL TRIFENATATE

REACTIONS (2)
  - Renal failure [Unknown]
  - Chronic kidney disease [Not Recovered/Not Resolved]

NARRATIVE: CASE EVENT DATE: 20180123
